FAERS Safety Report 24297847 (Version 1)
Quarter: 2024Q3

REPORT INFORMATION
  Report Type: Spontaneous
  Country: US (occurrence: US)
  Receive Date: 20240909
  Receipt Date: 20240909
  Transmission Date: 20241017
  Serious: Yes (Life-Threatening, Other)
  Sender: MACLEODS
  Company Number: US-MACLEODS PHARMA-MAC2024049170

PATIENT

DRUGS (7)
  1. LIDOCAINE [Suspect]
     Active Substance: LIDOCAINE
     Indication: Epidural anaesthesia
     Dosage: ADMINISTERED THROUGH THE EPIDURAL CATHETER/15 ML OF 2% LIDOCAINE IN THREE 5 ML DOSES OVER 8 MINUTES
     Route: 008
  2. LIDOCAINE [Suspect]
     Active Substance: LIDOCAINE
     Indication: Epidural anaesthesia
  3. BUPIVACAINE [Concomitant]
     Active Substance: BUPIVACAINE
     Dosage: MIXTURE OF 9.0 MG OF 0.75% HYPERBARIC BUPIVACAIN
  4. BUPIVACAINE [Concomitant]
     Active Substance: BUPIVACAINE
  5. FENTANYL [Concomitant]
     Active Substance: FENTANYL\FENTANYL CITRATE
     Indication: Product used for unknown indication
     Dosage: MIXTURE OF 15 MCG FENTANY
  6. MORPHINE [Concomitant]
     Active Substance: MORPHINE
     Indication: Product used for unknown indication
     Dosage: MIXTURE OF 0.2 MG PRESERVATIVE-FREE MORPHINE
  7. CHLORHEXIDINE [Concomitant]
     Active Substance: CHLORHEXIDINE
     Indication: Product used for unknown indication
     Dosage: BACK WAS PREPPED
     Route: 065

REACTIONS (8)
  - Local anaesthetic systemic toxicity [Recovered/Resolved]
  - Dose calculation error [Recovered/Resolved]
  - Maternal exposure during delivery [Unknown]
  - Overdose [Recovered/Resolved]
  - Loss of consciousness [Recovered/Resolved]
  - Gaze palsy [Recovered/Resolved]
  - Mental status changes [Recovered/Resolved]
  - Dysarthria [Recovered/Resolved]
